FAERS Safety Report 7323100-5 (Version None)
Quarter: 2011Q1

REPORT INFORMATION
  Report Type: 
  Country: None (occurrence: None)
  Receive Date: 20110301
  Receipt Date: 20110218
  Transmission Date: 20110831
  Serious: Yes (Hospitalization)
  Sender: FDA-Public Use
  Company Number: RU-NOVOPROD-319384

PATIENT
  Age: 64 Year
  Sex: Female
  Weight: 90 kg

DRUGS (9)
  1. PROTAPHANE HM PENFILL [Suspect]
  2. ACTRAPID HM PENFILL [Concomitant]
     Dosage: 32 IU, QD
     Route: 058
     Dates: start: 20060101, end: 20101119
  3. HYPOTHIAZIDE [Concomitant]
     Dosage: 25 MG, QD
  4. ACTRAPID HM PENFILL [Concomitant]
     Dosage: 45 IU, QD
     Dates: start: 20101101
  5. LISINOPRIL [Concomitant]
     Dosage: 20 MG, QD
  6. HUMULIN N [Concomitant]
     Dosage: UNK
     Dates: start: 20101101
  7. PROTAPHANE HM PENFILL [Suspect]
     Indication: TYPE 2 DIABETES MELLITUS
     Dosage: 35 IU, QD
     Route: 058
     Dates: start: 20060101, end: 20101119
  8. PROTAPHANE HM PENFILL [Suspect]
  9. HUMALOG [Concomitant]
     Dosage: UNK
     Dates: start: 20101101

REACTIONS (5)
  - TINNITUS [None]
  - BLOOD GLUCOSE INCREASED [None]
  - HEADACHE [None]
  - FACE OEDEMA [None]
  - PRODUCT QUALITY ISSUE [None]
